FAERS Safety Report 12046269 (Version 1)
Quarter: 2016Q1

REPORT INFORMATION
  Report Type: Report from Study
  Country: FR (occurrence: FR)
  Receive Date: 20160209
  Receipt Date: 20160209
  Transmission Date: 20160526
  Serious: Yes (Hospitalization)
  Sender: FDA-Public Use
  Company Number: FR-CELGENE-FRA-2016015898

PATIENT
  Age: 61 Year
  Sex: Male
  Weight: 81.5 kg

DRUGS (5)
  1. ROMIDEPSIN [Suspect]
     Active Substance: ROMIDEPSIN
     Indication: PERIPHERAL T-CELL LYMPHOMA UNSPECIFIED
     Dosage: 24 MILLIGRAM
     Route: 041
     Dates: start: 20150219, end: 20150616
  2. VINCRISTINE [Suspect]
     Active Substance: VINCRISTINE
     Indication: PERIPHERAL T-CELL LYMPHOMA UNSPECIFIED
     Route: 065
     Dates: start: 20150219, end: 20150613
  3. CYCLOPHOSPHAMIDE. [Suspect]
     Active Substance: CYCLOPHOSPHAMIDE
     Indication: PERIPHERAL T-CELL LYMPHOMA UNSPECIFIED
     Route: 065
     Dates: start: 20150219, end: 20150613
  4. PREDNISOLONE. [Suspect]
     Active Substance: PREDNISOLONE
     Indication: PERIPHERAL T-CELL LYMPHOMA UNSPECIFIED
     Route: 065
     Dates: start: 20150219, end: 20150613
  5. DOXORUBICIN [Suspect]
     Active Substance: DOXORUBICIN
     Indication: PERIPHERAL T-CELL LYMPHOMA UNSPECIFIED
     Route: 065
     Dates: start: 20150219, end: 20150613

REACTIONS (2)
  - Atrioventricular block complete [Recovered/Resolved]
  - Haemorrhage intracranial [Recovered/Resolved]

NARRATIVE: CASE EVENT DATE: 20151002
